FAERS Safety Report 18769174 (Version 3)
Quarter: 2021Q1

REPORT INFORMATION
  Report Type: Spontaneous
  Country: CZ (occurrence: CZ)
  Receive Date: 20210121
  Receipt Date: 20210317
  Transmission Date: 20210419
  Serious: Yes (Death, Hospitalization)
  Sender: FDA-Public Use
  Company Number: CZ-VERTEX PHARMACEUTICALS-2021-000569

PATIENT
  Age: 31 Year
  Sex: Female

DRUGS (23)
  1. PULMOZYME [Concomitant]
     Active Substance: DORNASE ALFA
     Dosage: 2.5 MG 1X1 AMPULE
  2. SERETIDE [Concomitant]
     Active Substance: FLUTICASONE PROPIONATE\SALMETEROL XINAFOATE
     Dosage: 50/500 UG 2X1
  3. VIGANTOL [COLECALCIFEROL] [Concomitant]
     Active Substance: CHOLECALCIFEROL
     Dosage: 0.5 MG/ML 3 DROPS/DAY
  4. PARACETAMOL [Concomitant]
     Active Substance: ACETAMINOPHEN
     Indication: PAIN
     Dosage: 1G
     Route: 042
  5. TYGACIL [Concomitant]
     Active Substance: TIGECYCLINE
     Dosage: 2X50MG
     Route: 042
  6. ATARAX [ALPRAZOLAM] [Concomitant]
     Active Substance: ALPRAZOLAM
     Dosage: 25 MG 1X1 TABLET
  7. NACL [Concomitant]
     Active Substance: SODIUM CHLORIDE
     Dosage: 500 MG 1X1 CAPSULE
  8. PANTOPRAZOL [PANTOPRAZOLE] [Concomitant]
     Active Substance: PANTOPRAZOLE
     Dosage: 1X20 MG TABLET
  9. OFLOXIN [OFLOXACIN] [Concomitant]
     Dosage: 2X400 MG
     Route: 048
  10. SORBIFER DURULES [ASCORBIC ACID;FERROUS SULFATE] [Concomitant]
     Dosage: 320/60 MG 2X1 TABLETS
  11. ZINC. [Concomitant]
     Active Substance: ZINC
     Dosage: 30 MG 1X1 TABLET
  12. ACC INJEKT [Concomitant]
     Active Substance: ACETYLCYSTEINE
     Dosage: 300 MG 2X1 AMP
  13. TAURIN [Concomitant]
     Dosage: 3X1 TABLET
  14. KALYDECO [Suspect]
     Active Substance: IVACAFTOR
     Indication: CYSTIC FIBROSIS
     Dosage: 150 MG, QD (0?0?1)
     Route: 048
     Dates: start: 20200522, end: 20210102
  15. ENTEROL [FURAZOLIDONE] [Concomitant]
     Active Substance: FURAZOLIDONE
     Dosage: 250 MG 3X1 CAPSULE
  16. VITAMIN A [RETINOL ACETATE] [Concomitant]
     Dosage: 2X30.000 IU CAPSULE
  17. MAGNESIUM MALATE. [Concomitant]
     Active Substance: MAGNESIUM MALATE
     Dosage: 1G 2X1 TABLET
  18. KANAVIT [PHYTOMENADIONE] [Concomitant]
     Dosage: 10MG/ML 5 DROPS/DAY
  19. CALCICHEW [Concomitant]
     Active Substance: CALCIUM CARBONATE
     Dosage: 500 MG/400 IU 1X1 TABLET
  20. SYMKEVI [Suspect]
     Active Substance: IVACAFTOR\TEZACAFTOR
     Indication: CYSTIC FIBROSIS
     Dosage: 1 DOSAGE FORM, QD (1?0?0 )
     Route: 048
     Dates: start: 20200522, end: 20210102
  21. ONDANSETRON [Concomitant]
     Active Substance: ONDANSETRON
     Indication: VOMITING
     Dosage: 4 MG 1 AMP
     Route: 042
  22. PARACETAMOL [Concomitant]
     Active Substance: ACETAMINOPHEN
     Indication: PYREXIA
  23. PIPERACILLIN AND TAZOBACTAM [Concomitant]
     Active Substance: PIPERACILLIN SODIUM\TAZOBACTAM SODIUM
     Dosage: 4X4,5 G
     Route: 042

REACTIONS (2)
  - COVID-19 [Fatal]
  - Burkholderia cepacia complex infection [Fatal]

NARRATIVE: CASE EVENT DATE: 20201116
